FAERS Safety Report 9531654 (Version 1)
Quarter: 2013Q2

REPORT INFORMATION
  Report Type: Spontaneous
  Country: US (occurrence: None)
  Receive Date: 20130403
  Receipt Date: 20130403
  Transmission Date: 20140414
  Serious: Yes (Other)
  Sender: FDA-Public Use
  Company Number: US-2013-10046

PATIENT
  Age: 52 Year
  Sex: Male

DRUGS (2)
  1. BUSULFEX [Suspect]
  2. ETOPOSIDE (ETOPOSIDE) [Suspect]

REACTIONS (1)
  - Chronic graft versus host disease [None]
